FAERS Safety Report 23116750 (Version 2)
Quarter: 2024Q2

REPORT INFORMATION
  Report Type: Report from Study
  Country: GB (occurrence: GB)
  Receive Date: 20231027
  Receipt Date: 20240613
  Transmission Date: 20240716
  Serious: Yes (Other)
  Sender: FDA-Public Use
  Company Number: GB-002147023-NVSC2022GB202563

PATIENT
  Sex: Female

DRUGS (4)
  1. COSENTYX [Suspect]
     Active Substance: SECUKINUMAB
     Indication: Axial spondyloarthritis
     Dosage: 150 MG, QMO
     Route: 058
     Dates: start: 202203
  2. COSENTYX [Suspect]
     Active Substance: SECUKINUMAB
     Dosage: 150 MG, QMO
     Route: 058
     Dates: start: 202204
  3. COSENTYX [Suspect]
     Active Substance: SECUKINUMAB
     Dosage: UNK (LAST INJECTION ON 20 SEP)
     Route: 065
  4. COSENTYX [Suspect]
     Active Substance: SECUKINUMAB
     Dosage: 150 MG, QMO
     Route: 058
     Dates: start: 20220412

REACTIONS (4)
  - Cellulitis [Unknown]
  - Lower respiratory tract infection [Unknown]
  - COVID-19 [Unknown]
  - Infection [Unknown]
